FAERS Safety Report 7354622-9 (Version None)
Quarter: 2011Q1

REPORT INFORMATION
  Report Type: 
  Country: None (occurrence: None)
  Receive Date: 20110316
  Receipt Date: 20110314
  Transmission Date: 20110831
  Serious: No
  Sender: FDA-Public Use
  Company Number: US-PFIZER INC-2011056036

PATIENT
  Sex: Female
  Weight: 113.38 kg

DRUGS (5)
  1. POTASSIUM [Concomitant]
     Dosage: 10 MEQ, 2X/DAY
  2. COREG [Concomitant]
     Dosage: 12.5 MG, UNK
  3. LYRICA [Suspect]
     Indication: DIABETIC NEUROPATHY
     Dosage: 75 MG, DAILY
     Route: 048
     Dates: start: 20110201, end: 20110310
  4. BUMEX [Concomitant]
     Dosage: UNK
  5. ACTOS [Concomitant]
     Dosage: 30 MG, UNK

REACTIONS (2)
  - MONOPARESIS [None]
  - FATIGUE [None]
